FAERS Safety Report 7805425-X (Version None)
Quarter: 2011Q4

REPORT INFORMATION
  Report Type: 
  Country: None (occurrence: None)
  Receive Date: 20111010
  Receipt Date: 20110930
  Transmission Date: 20120403
  Serious: Yes (Hospitalization, Other)
  Sender: FDA-Public Use
  Company Number: US-ASTRAZENECA-2011SE58967

PATIENT
  Age: 11 Year
  Sex: Male

DRUGS (1)
  1. SEROQUEL XR [Suspect]
     Indication: SCHIZOAFFECTIVE DISORDER
     Dosage: WITH A TOTAL DAILY DOSE OF 300 MG
     Route: 048
     Dates: start: 20060101

REACTIONS (1)
  - TOXICITY TO VARIOUS AGENTS [None]
